FAERS Safety Report 8443026-3 (Version None)
Quarter: 2012Q2

REPORT INFORMATION
  Report Type: 
  Country: None (occurrence: None)
  Receive Date: 20120615
  Receipt Date: 20120613
  Transmission Date: 20120825
  Serious: Yes (Hospitalization)
  Sender: FDA-Public Use
  Company Number: PHHY2011PL102734

PATIENT
  Age: 56 Year
  Sex: Female

DRUGS (1)
  1. ATORVASTATIN CALCIUM [Suspect]
     Dosage: 20 MG, QD

REACTIONS (8)
  - SKIN LESION [None]
  - ARTHRALGIA [None]
  - TRANSAMINASES INCREASED [None]
  - MYALGIA [None]
  - DIPLOPIA [None]
  - BLOOD CREATINE PHOSPHOKINASE INCREASED [None]
  - RASH MACULO-PAPULAR [None]
  - LUPUS-LIKE SYNDROME [None]
